FAERS Safety Report 7968940-4 (Version None)
Quarter: 2011Q4

REPORT INFORMATION
  Report Type: 
  Country: None (occurrence: None)
  Receive Date: 20111209
  Receipt Date: 20111130
  Transmission Date: 20120403
  Serious: Yes (Other)
  Sender: FDA-Public Use
  Company Number: JP-ELI_LILLY_AND_COMPANY-JP201112000024

PATIENT
  Age: 71 Year
  Sex: Male

DRUGS (2)
  1. INSULIN [Concomitant]
     Indication: DIABETES MELLITUS
     Route: 058
  2. GEMZAR [Suspect]
     Indication: PANCREATIC CARCINOMA
     Dosage: 600 MG/M2, OTHER
     Route: 042

REACTIONS (1)
  - LUNG DISORDER [None]
